FAERS Safety Report 5994505-X (Version None)
Quarter: 2008Q4

REPORT INFORMATION
  Report Type: 
  Country: None (occurrence: None)
  Receive Date: 20081210
  Receipt Date: 20080919
  Transmission Date: 20090506
  Serious: Yes (Hospitalization)
  Sender: FDA-Public Use
  Company Number: US025138

PATIENT
  Age: 41 Year
  Sex: Female

DRUGS (1)
  1. BENDAMUSTINE [Suspect]
     Indication: NON-HODGKIN'S LYMPHOMA
     Dosage: 120 MG/M2 FIRST THRU SIXTH CYCLE QD INTRAVENOUS DRIP
     Route: 041
     Dates: start: 20080501, end: 20080815

REACTIONS (8)
  - CARDIAC FAILURE CONGESTIVE [None]
  - CARDIOMEGALY [None]
  - ELECTROCARDIOGRAM ST SEGMENT ABNORMAL [None]
  - PALPITATIONS [None]
  - PERICARDIAL EFFUSION [None]
  - PLEURAL EFFUSION [None]
  - SINUS TACHYCARDIA [None]
  - WHEEZING [None]
